FAERS Safety Report 7738772-0 (Version None)
Quarter: 2011Q3

REPORT INFORMATION
  Report Type: 
  Country: None (occurrence: None)
  Receive Date: 20110908
  Receipt Date: 20110831
  Transmission Date: 20111222
  Serious: Yes (Other)
  Sender: FDA-Public Use
  Company Number: US-MILLENNIUM PHARMACEUTICALS, INC.-2011-03967

PATIENT

DRUGS (2)
  1. MELPHALAN [Suspect]
     Indication: AMYLOIDOSIS
  2. VELCADE [Suspect]
     Dosage: 1 MG/M2, UNK

REACTIONS (1)
  - CLOSTRIDIUM DIFFICILE COLITIS [None]
